FAERS Safety Report 13907471 (Version 1)
Quarter: 2017Q3

REPORT INFORMATION
  Report Type: Spontaneous
  Country: US (occurrence: US)
  Receive Date: 20170825
  Receipt Date: 20170825
  Transmission Date: 20171127
  Serious: No
  Sender: FDA-Public Use
  Company Number: US-ROCHE-1070867

PATIENT
  Age: 9 Year
  Sex: Female
  Weight: 23.6 kg

DRUGS (3)
  1. EPOGEN [Concomitant]
     Active Substance: ERYTHROPOIETIN
  2. NUTROPIN AQ [Suspect]
     Active Substance: SOMATROPIN
     Indication: GROWTH HORMONE DEFICIENCY
     Route: 058
     Dates: start: 20120111
  3. NUTROPIN AQ [Suspect]
     Active Substance: SOMATROPIN
     Route: 058
     Dates: start: 20120103

REACTIONS (3)
  - Vomiting [Recovered/Resolved]
  - Poor quality drug administered [Unknown]
  - Malaise [Recovered/Resolved]

NARRATIVE: CASE EVENT DATE: 201203
